FAERS Safety Report 20704432 (Version 2)
Quarter: 2025Q4

REPORT INFORMATION
  Report Type: Spontaneous
  Country: EU (occurrence: EU)
  Receive Date: 20220413
  Receipt Date: 20251209
  Transmission Date: 20260118
  Serious: Yes (Death, Life-Threatening)
  Sender: AUROBINDO
  Company Number: EU-MYLANLABS-2022M1026176

PATIENT
  Age: 17 Year
  Sex: Male

DRUGS (16)
  1. AZITHROMYCIN [Suspect]
     Active Substance: AZITHROMYCIN
     Indication: Balamuthia infection
     Dosage: UNK
     Route: 065
  2. AZITHROMYCIN [Suspect]
     Active Substance: AZITHROMYCIN
     Indication: Skin infection
  3. AZITHROMYCIN [Suspect]
     Active Substance: AZITHROMYCIN
     Indication: Meningoencephalitis amoebic
  4. AZITHROMYCIN [Suspect]
     Active Substance: AZITHROMYCIN
     Indication: Infection
  5. FLUCONAZOLE [Suspect]
     Active Substance: FLUCONAZOLE
     Indication: Balamuthia infection
     Dosage: UNK
     Route: 065
  6. FLUCONAZOLE [Suspect]
     Active Substance: FLUCONAZOLE
     Indication: Skin infection
  7. FLUCONAZOLE [Suspect]
     Active Substance: FLUCONAZOLE
     Indication: Meningoencephalitis amoebic
  8. FLUCONAZOLE [Suspect]
     Active Substance: FLUCONAZOLE
     Indication: Infection
  9. ALBENDAZOLE [Suspect]
     Active Substance: ALBENDAZOLE
     Indication: Balamuthia infection
     Dosage: UNK
     Route: 065
  10. ALBENDAZOLE [Suspect]
     Active Substance: ALBENDAZOLE
     Indication: Skin infection
  11. ALBENDAZOLE [Suspect]
     Active Substance: ALBENDAZOLE
     Indication: Infection
  12. ALBENDAZOLE [Suspect]
     Active Substance: ALBENDAZOLE
     Indication: Meningoencephalitis amoebic
  13. SULFAMETHOXAZOLE\TRIMETHOPRIM [Suspect]
     Active Substance: SULFAMETHOXAZOLE\TRIMETHOPRIM
     Indication: Balamuthia infection
     Dosage: UNK
     Route: 065
  14. SULFAMETHOXAZOLE\TRIMETHOPRIM [Suspect]
     Active Substance: SULFAMETHOXAZOLE\TRIMETHOPRIM
     Indication: Skin infection
  15. SULFAMETHOXAZOLE\TRIMETHOPRIM [Suspect]
     Active Substance: SULFAMETHOXAZOLE\TRIMETHOPRIM
     Indication: Infection
  16. SULFAMETHOXAZOLE\TRIMETHOPRIM [Suspect]
     Active Substance: SULFAMETHOXAZOLE\TRIMETHOPRIM
     Indication: Meningoencephalitis amoebic

REACTIONS (1)
  - Drug ineffective [Fatal]
